FAERS Safety Report 12939999 (Version 1)
Quarter: 2016Q4

REPORT INFORMATION
  Report Type: Spontaneous
  Country: US (occurrence: US)
  Receive Date: 20161115
  Receipt Date: 20161115
  Transmission Date: 20170207
  Serious: Yes (Other)
  Sender: FDA-Public Use
  Company Number: None

PATIENT
  Age: 50 Year
  Sex: Female
  Weight: 81 kg

DRUGS (1)
  1. XIIDRA [Suspect]
     Active Substance: LIFITEGRAST
     Indication: DRY EYE
     Dosage: ?          QUANTITY:1 DROP(S);?
     Route: 047
     Dates: start: 20161109, end: 20161110

REACTIONS (7)
  - Dizziness [None]
  - Diarrhoea [None]
  - Abdominal pain upper [None]
  - Abdominal discomfort [None]
  - Dysgeusia [None]
  - Nausea [None]
  - Eye irritation [None]

NARRATIVE: CASE EVENT DATE: 20161109
